FAERS Safety Report 7228239-0 (Version None)
Quarter: 2011Q1

REPORT INFORMATION
  Report Type: 
  Country: None (occurrence: None)
  Receive Date: 20110114
  Receipt Date: 20110109
  Transmission Date: 20110831
  Serious: Yes (Disabling, Other)
  Sender: FDA-Public Use
  Company Number: PT-PFIZER INC-2011005442

PATIENT
  Age: 77 Year
  Sex: Male

DRUGS (5)
  1. XANAX [Concomitant]
     Dosage: UNK
  2. LYRICA [Suspect]
     Indication: NEURALGIA
     Dosage: 75 MG, 2X/DAY
     Route: 048
     Dates: start: 20101229, end: 20110107
  3. ACETAMINOPHEN [Concomitant]
     Dosage: 1000 MG, UNK
     Dates: start: 20101229, end: 20110107
  4. NOLOTIL /SPA/ [Concomitant]
     Dosage: UNK
     Dates: start: 20101229, end: 20110107
  5. TILCOTIL [Concomitant]
     Dosage: UNK
     Dates: start: 20101229, end: 20110107

REACTIONS (5)
  - MUSCLE RIGIDITY [None]
  - GAIT DISTURBANCE [None]
  - MUSCLE SPASMS [None]
  - MUSCULAR WEAKNESS [None]
  - BONE PAIN [None]
